FAERS Safety Report 22216021 (Version 1)
Quarter: 2023Q2

REPORT INFORMATION
  Report Type: Report from Study
  Country: US (occurrence: US)
  Receive Date: 20230417
  Receipt Date: 20230417
  Transmission Date: 20230721
  Serious: Yes (Hospitalization)
  Sender: FDA-Public Use
  Company Number: US-SPECGX-T202300919

PATIENT
  Age: 55 Year
  Sex: Male
  Weight: 76 kg

DRUGS (8)
  1. ROXICODONE [Suspect]
     Active Substance: OXYCODONE HYDROCHLORIDE
     Indication: Abdominal pain
     Dosage: 5 MILLIGRAM, PRN (EVERY 5 HOURS)
     Route: 048
     Dates: start: 20210204, end: 20210228
  2. ROXICODONE [Suspect]
     Active Substance: OXYCODONE HYDROCHLORIDE
     Dosage: 5 MILLIGRAM, PRN (EVERY 4 HOURS)
     Route: 048
     Dates: start: 20210204, end: 20210228
  3. ROXICODONE [Suspect]
     Active Substance: OXYCODONE HYDROCHLORIDE
     Dosage: 5 MILLIGRAM, PRN (EVERY 4 HOURS)
     Route: 048
     Dates: start: 20210303, end: 20210304
  4. ROXICODONE [Suspect]
     Active Substance: OXYCODONE HYDROCHLORIDE
     Dosage: 5 MILLIGRAM, PRN (EVERY 4 HOURS)
     Route: 048
     Dates: start: 20210305, end: 20210308
  5. TYLENOL [Suspect]
     Active Substance: ACETAMINOPHEN
     Indication: Pain
     Dosage: UNK
     Route: 065
     Dates: start: 20210204, end: 20210226
  6. FENTANYL [Concomitant]
     Active Substance: FENTANYL
     Indication: Pain
     Dosage: UNK
     Route: 042
     Dates: start: 20210228
  7. MORPHINE [Concomitant]
     Active Substance: MORPHINE
     Indication: Pain
     Dosage: 4 MILLIGRAM
     Route: 042
     Dates: start: 20210228
  8. LOVENOX [Concomitant]
     Active Substance: ENOXAPARIN SODIUM
     Indication: Thrombosis prophylaxis
     Dosage: 40 MILLIGRAM, QD
     Route: 042
     Dates: start: 20210228, end: 20210304

REACTIONS (7)
  - Gastrointestinal necrosis [Recovered/Resolved]
  - Small intestinal obstruction [Recovered/Resolved]
  - Intestinal obstruction [Recovered/Resolved]
  - Postoperative ileus [Recovered/Resolved]
  - Colectomy [Unknown]
  - Flatulence [Unknown]
  - Diarrhoea [Unknown]

NARRATIVE: CASE EVENT DATE: 20210204
